FAERS Safety Report 8582169-0 (Version None)
Quarter: 2012Q3

REPORT INFORMATION
  Report Type: 
  Country: None (occurrence: None)
  Receive Date: 20120809
  Receipt Date: 20120322
  Transmission Date: 20120928
  Serious: Yes (Other)
  Sender: FDA-Public Use
  Company Number: PHHY2012CA067653

PATIENT
  Sex: Female

DRUGS (2)
  1. TRILEPTAL [Suspect]
     Indication: EPILEPSY
  2. BETASERON [Suspect]
     Indication: MULTIPLE SCLEROSIS

REACTIONS (3)
  - FATIGUE [None]
  - HEMIPLEGIA [None]
  - MULTIPLE SCLEROSIS RELAPSE [None]
